FAERS Safety Report 6879250-0 (Version None)
Quarter: 2010Q3

REPORT INFORMATION
  Report Type: 
  Country: None (occurrence: None)
  Receive Date: 20100728
  Receipt Date: 20100305
  Transmission Date: 20110219
  Serious: No
  Sender: FDA-Public Use
  Company Number: US-ABBOTT-09P-163-0604716-00

PATIENT
  Sex: Female
  Weight: 65.83 kg

DRUGS (3)
  1. SYNTHROID [Suspect]
     Indication: AUTOIMMUNE THYROIDITIS
     Dates: start: 19980101
  2. SYNTHROID [Suspect]
     Dates: start: 20090901
  3. KLONOPIN [Concomitant]
     Indication: ANXIETY

REACTIONS (4)
  - ALOPECIA [None]
  - CONSTIPATION [None]
  - DEPRESSION [None]
  - FATIGUE [None]
